FAERS Safety Report 13369976 (Version 2)
Quarter: 2017Q2

REPORT INFORMATION
  Report Type: Spontaneous
  Country: US (occurrence: US)
  Receive Date: 20170324
  Receipt Date: 20170608
  Transmission Date: 20170830
  Serious: Yes (Hospitalization, Other)
  Sender: FDA-Public Use
  Company Number: US-PFIZER INC-2017124342

PATIENT
  Age: 44 Year
  Sex: Female
  Weight: 64 kg

DRUGS (18)
  1. ZOFRAN [Concomitant]
     Active Substance: ONDANSETRON HYDROCHLORIDE
     Indication: NAUSEA
     Dosage: 8 MG, AS NEEDED [EVERY 8 (EIGHT) HOURS]
     Route: 048
     Dates: end: 20170530
  2. RISPERDAL [Concomitant]
     Active Substance: RISPERIDONE
     Dosage: 1 MG, 1X/DAY [NIGHTLY: BED TIME]
     Route: 048
  3. VITAMIN B1 [Concomitant]
     Active Substance: THIAMINE HYDROCHLORIDE
     Dosage: 100 MG, 1X/DAY [MORNING]
     Route: 048
  4. ALDACTONE [Concomitant]
     Active Substance: SPIRONOLACTONE
     Dosage: 25 MG, 1X/DAY [MORNING]
     Route: 048
     Dates: end: 20170530
  5. VENTOLIN [Concomitant]
     Active Substance: ALBUTEROL SULFATE
     Indication: WHEEZING
     Dosage: UNK UNK, AS NEEDED [INHALE 2 PUFFS INTO THE LUNGS EVERY 6(SIX) HOURS]
     Route: 055
  6. PEPCID [Concomitant]
     Active Substance: FAMOTIDINE
     Indication: DYSPEPSIA
     Dosage: 20 MG, AS NEEDED [2 (TWO) TIMES DAILY]
     Route: 048
  7. TOPROL XL [Concomitant]
     Active Substance: METOPROLOL SUCCINATE
     Dosage: 12.5 MG, 2X/DAY[TAKE 0.5 TABLETS,MORNING, EVENING]
     Route: 048
  8. AROMASIN [Suspect]
     Active Substance: EXEMESTANE
     Indication: BREAST CANCER
     Dosage: 25 MG, 1X/DAY [MORNING]
     Route: 048
     Dates: start: 2016
  9. NEURONTIN [Concomitant]
     Active Substance: GABAPENTIN
     Dosage: 300 MG, 3X/DAY[MORNING, NOON, EVENING]
     Route: 048
  10. THERAGRAN [Concomitant]
     Active Substance: VITAMINS
     Dosage: TAKE 1 TABLETS BY MOUTH DAILY: MORNING
     Route: 048
  11. LEVAQUIN [Concomitant]
     Active Substance: LEVOFLOXACIN
     Dosage: 750 MG, 1X/DAY [MORNING]
     Route: 048
     Dates: end: 20170530
  12. PROAIR HFA [Concomitant]
     Active Substance: ALBUTEROL SULFATE
     Indication: WHEEZING
     Dosage: UNK UNK, AS NEEDED [INHALE 2 PUFFS INTO THE LUNGS EVERY 6(SIX) HOURS]
  13. LACTULOSE. [Concomitant]
     Active Substance: LACTULOSE
     Dosage: 20 G, 4X/DAY [MORNING, NOON, EVENING, BEDTIME]
     Route: 048
     Dates: end: 20170530
  14. AROMASIN [Suspect]
     Active Substance: EXEMESTANE
     Indication: NEOPLASM MALIGNANT
  15. MAG-OX [Concomitant]
     Active Substance: MAGNESIUM OXIDE
     Dosage: 400 MG, 2X/DAY [WITH MEALS,MORNING, EVENING]
     Route: 048
  16. VITAMIN B12 [Concomitant]
     Active Substance: CYANOCOBALAMIN
     Dosage: 1000 UG, 1X/DAY [MORNING]
     Route: 048
  17. CYMBALTA [Concomitant]
     Active Substance: DULOXETINE HYDROCHLORIDE
     Dosage: 90 MG, 1X/DAY [MORNING]
  18. FOLVITE [Concomitant]
     Active Substance: FOLIC ACID
     Dosage: 1 MG, 1X/DAY [MORNING]
     Route: 048

REACTIONS (6)
  - Myocardial infarction [Recovered/Resolved]
  - Pneumonia [Not Recovered/Not Resolved]
  - Cardiac disorder [Recovered/Resolved]
  - Pancreatitis relapsing [Recovered/Resolved]
  - Dyspnoea [Recovered/Resolved]
  - Breast mass [Recovered/Resolved]

NARRATIVE: CASE EVENT DATE: 201703
